FAERS Safety Report 5569923-4 (Version None)
Quarter: 2007Q4

REPORT INFORMATION
  Report Type: 
  Country: None (occurrence: None)
  Receive Date: 20071220
  Receipt Date: 20071213
  Transmission Date: 20080405
  Serious: Yes (Hospitalization)
  Sender: FDA-Public Use
  Company Number: MX-MERCK-0712MEX00003

PATIENT
  Age: 25 Year
  Sex: Male

DRUGS (5)
  1. CRIXIVAN [Suspect]
     Indication: HIV INFECTION
     Route: 048
     Dates: start: 19990101
  2. AZATHIOPRINE [Concomitant]
     Indication: HIV INFECTION
     Route: 048
     Dates: start: 19990101, end: 19990101
  3. ZIDOVUDINE [Concomitant]
     Indication: HIV INFECTION
     Route: 065
     Dates: start: 19990101, end: 19990101
  4. LAMIVUDINE [Concomitant]
     Indication: HIV INFECTION
     Route: 065
     Dates: start: 19990101
  5. STAVUDINE [Concomitant]
     Indication: HIV INFECTION
     Route: 065
     Dates: start: 19990101

REACTIONS (7)
  - DYSPEPSIA [None]
  - GENERAL PHYSICAL CONDITION ABNORMAL [None]
  - HAEMOGLOBIN DECREASED [None]
  - HYPOTENSION [None]
  - PLATELET COUNT DECREASED [None]
  - PYREXIA [None]
  - WHITE BLOOD CELL COUNT DECREASED [None]
